FAERS Safety Report 17127089 (Version 2)
Quarter: 2019Q4

REPORT INFORMATION
  Report Type: Report from Study
  Country: DE (occurrence: DE)
  Receive Date: 20191209
  Receipt Date: 20191210
  Transmission Date: 20200122
  Serious: Yes (Hospitalization)
  Sender: FDA-Public Use
  Company Number: DE-TEVA-2019-DE-1148108

PATIENT
  Age: 55 Year
  Sex: Female

DRUGS (16)
  1. CYCLOSPORIN [Suspect]
     Active Substance: CYCLOSPORINE
     Dosage: 2 SEPERATED DOSES 150 MG, BID?ROUTE OF ADMINISTRATION : ORAL
     Route: 048
     Dates: start: 20040312, end: 20040614
  2. RAMIPRIL. [Concomitant]
     Active Substance: RAMIPRIL
  3. URBASON [Suspect]
     Active Substance: METHYLPREDNISOLONE
     Indication: RENAL TRANSPLANT
     Route: 048
     Dates: start: 20030117
  4. NORVASC [Concomitant]
     Active Substance: AMLODIPINE BESYLATE
  5. CYNT [Concomitant]
  6. PRAVASTATIN. [Concomitant]
     Active Substance: PRAVASTATIN
  7. URBASON [Suspect]
     Active Substance: METHYLPREDNISOLONE
     Dosage: 2 SEPERATED DOSES 150 MG, BID?ROUTE OF ADMINISTRATION : ORAL .
     Route: 048
     Dates: start: 20031230
  8. DACLIZUMAB [Suspect]
     Active Substance: DACLIZUMAB
     Indication: RENAL TRANSPLANT
     Route: 042
     Dates: start: 20031227
  9. DACLIZUMAB [Suspect]
     Active Substance: DACLIZUMAB
     Dosage: 2 SEPERATED DOSES 150 MG, BID?ROUTE OF ADMINISTRATION : INTRAVENOUS (NOT OTHERWISE
     Route: 042
     Dates: start: 20040112, end: 20040224
  10. VALCYTE [Concomitant]
     Active Substance: VALGANCICLOVIR HYDROCHLORIDE
  11. MYCOPHENOLATE MOFETIL. [Suspect]
     Active Substance: MYCOPHENOLATE MOFETIL
     Indication: RENAL TRANSPLANT
     Route: 048
     Dates: start: 20031227
  12. CYCLOSPORIN [Suspect]
     Active Substance: CYCLOSPORINE
     Route: 048
  13. VESDIL [Concomitant]
     Active Substance: RAMIPRIL
  14. ESOMEPRAZOLE. [Concomitant]
     Active Substance: ESOMEPRAZOLE MAGNESIUM
  15. CYCLOSPORIN [Suspect]
     Active Substance: CYCLOSPORINE
     Dosage: 2 SEPERATED DOSES 150 MG, BID?ROUTE OF ADMINISTRATION : ORAL .
     Route: 048
     Dates: start: 20090219
  16. BELOC-ZOK [Concomitant]
     Active Substance: METOPROLOL SUCCINATE

REACTIONS (14)
  - Cytomegalovirus infection [Recovered/Resolved]
  - Acute kidney injury [Recovered/Resolved]
  - Incisional drainage [Recovered/Resolved]
  - Dehydration [Recovered/Resolved]
  - Enterobacter sepsis [Recovered/Resolved]
  - Kidney anastomosis [Recovered/Resolved]
  - Metabolic acidosis [Recovered/Resolved]
  - Transplant dysfunction [Recovered/Resolved]
  - Ureterectomy [Recovered/Resolved]
  - Ureteric stenosis [Recovered/Resolved]
  - Lymphocele [Recovered/Resolved]
  - Renal tubular disorder [Recovered/Resolved]
  - Nephrectomy [Recovered/Resolved]
  - Pain [Recovered/Resolved]

NARRATIVE: CASE EVENT DATE: 20040219
